FAERS Safety Report 18328706 (Version 1)
Quarter: 2020Q3

REPORT INFORMATION
  Report Type: Spontaneous
  Country: SA (occurrence: SA)
  Receive Date: 20200930
  Receipt Date: 20200930
  Transmission Date: 20201103
  Serious: Yes (Hospitalization)
  Sender: FDA-Public Use
  Company Number: SA-AXELLIA-003371

PATIENT
  Age: 59 Year
  Sex: Female

DRUGS (9)
  1. AMLODIPINE [Concomitant]
     Active Substance: AMLODIPINE BESYLATE
  2. ENOXAPARIN [Concomitant]
     Active Substance: ENOXAPARIN
  3. OCTREOTIDE/OCTREOTIDE ACETATE [Concomitant]
     Active Substance: OCTREOTIDE ACETATE
  4. COLISTIN [Interacting]
     Active Substance: COLISTIN
     Indication: STENOTROPHOMONAS INFECTION
  5. OMEPRAZOLE. [Interacting]
     Active Substance: OMEPRAZOLE
     Indication: PRODUCT USED FOR UNKNOWN INDICATION
  6. FLUCONAZOLE. [Suspect]
     Active Substance: FLUCONAZOLE
     Indication: CANDIDA INFECTION
  7. TIGECYCLINE. [Suspect]
     Active Substance: TIGECYCLINE
     Indication: CANDIDA INFECTION
     Dosage: AS A LOADING DOSE FOLLOWED BY 50MG EVERY 12H, 100MG EVERY 12H HIGH DOSE
  8. PARACETAMOL [Concomitant]
     Active Substance: ACETAMINOPHEN
  9. METOCLOPRAMIDE. [Concomitant]
     Active Substance: METOCLOPRAMIDE

REACTIONS (3)
  - Acute kidney injury [Recovering/Resolving]
  - Skin hyperpigmentation [Recovered/Resolved]
  - Drug interaction [Unknown]
